FAERS Safety Report 5953699-2 (Version None)
Quarter: 2008Q4

REPORT INFORMATION
  Report Type: 
  Country: None (occurrence: None)
  Receive Date: 20081114
  Receipt Date: 20081106
  Transmission Date: 20090506
  Serious: Yes (Hospitalization)
  Sender: FDA-Public Use
  Company Number: JP-ASTRAZENECA-2008AP08798

PATIENT
  Age: 17 Year
  Sex: Male

DRUGS (5)
  1. SEROQUEL [Suspect]
     Route: 048
  2. VALERIN [Suspect]
     Route: 048
  3. TRIAZOLAM [Suspect]
     Route: 048
  4. 2 KINDS OF OTC SLEEPING DRUG [Suspect]
  5. UNSPECIFIED DRUG [Suspect]

REACTIONS (2)
  - OVERDOSE [None]
  - SOMNOLENCE [None]
